FAERS Safety Report 5264396-3 (Version None)
Quarter: 2007Q1

REPORT INFORMATION
  Report Type: 
  Country: None (occurrence: None)
  Receive Date: 20070309
  Receipt Date: 20070227
  Transmission Date: 20070707
  Serious: Yes (Other)
  Sender: FDA-Public Use
  Company Number: 228091

PATIENT
  Age: 11 Year
  Sex: Male

DRUGS (2)
  1. NUTROPIN AQ [Suspect]
     Indication: GROWTH HORMONE DEFICIENCY
     Dosage: 1 MG, QD, SUBCUTANEOUS
     Route: 058
     Dates: start: 20050201
  2. CONCERTA [Concomitant]

REACTIONS (1)
  - ATRIOVENTRICULAR BLOCK [None]
